FAERS Safety Report 26112391 (Version 1)
Quarter: 2025Q4

REPORT INFORMATION
  Report Type: Spontaneous
  Country: US (occurrence: US)
  Receive Date: 20251202
  Receipt Date: 20251202
  Transmission Date: 20260117
  Serious: Yes (Other)
  Sender: PFIZER
  Company Number: US-PFIZER INC-PV202500137669

PATIENT
  Age: 81 Year
  Sex: Male

DRUGS (12)
  1. SILVER SULFADIAZENE [Suspect]
     Active Substance: SILVER SULFADIAZINE
     Indication: Balamuthia infection
     Dosage: 1500 MG, 4X/DAY, EVERY 6 HOURS
  2. SILVER SULFADIAZENE [Suspect]
     Active Substance: SILVER SULFADIAZINE
     Indication: Meningoencephalitis amoebic
  3. FLUCYTOSINE [Suspect]
     Active Substance: FLUCYTOSINE
     Indication: Balamuthia infection
     Dosage: 3000 MG, 4X/DAY
  4. FLUCYTOSINE [Suspect]
     Active Substance: FLUCYTOSINE
     Indication: Meningoencephalitis amoebic
  5. ALBENDAZOLE [Suspect]
     Active Substance: ALBENDAZOLE
     Indication: Balamuthia infection
     Dosage: 400 MG, 2X/DAY
  6. ALBENDAZOLE [Suspect]
     Active Substance: ALBENDAZOLE
     Indication: Meningoencephalitis amoebic
  7. MILTEFOSINE [Concomitant]
     Active Substance: MILTEFOSINE
     Indication: Balamuthia infection
     Dosage: 50 MG, 3X/DAY
  8. MILTEFOSINE [Concomitant]
     Active Substance: MILTEFOSINE
     Indication: Meningoencephalitis amoebic
  9. AZITHROMYCIN [Concomitant]
     Active Substance: AZITHROMYCIN
     Indication: Balamuthia infection
     Dosage: 500 MG, 1X/DAY
  10. AZITHROMYCIN [Concomitant]
     Active Substance: AZITHROMYCIN
     Indication: Meningoencephalitis amoebic
  11. FLUCONAZOLE [Concomitant]
     Active Substance: FLUCONAZOLE
     Indication: Balamuthia infection
     Dosage: 1000 MG, 1X/DAY
  12. FLUCONAZOLE [Concomitant]
     Active Substance: FLUCONAZOLE
     Indication: Meningoencephalitis amoebic

REACTIONS (4)
  - Acute kidney injury [Unknown]
  - Liver injury [Unknown]
  - Nausea [Unknown]
  - Vomiting [Unknown]
